FAERS Safety Report 8361151-2 (Version None)
Quarter: 2012Q2

REPORT INFORMATION
  Report Type: 
  Country: None (occurrence: None)
  Receive Date: 20120515
  Receipt Date: 20120430
  Transmission Date: 20120825
  Serious: Yes (Other)
  Sender: FDA-Public Use
  Company Number: DE-ROCHE-1068165

PATIENT
  Age: 73 Year
  Sex: Female

DRUGS (1)
  1. BONIVA [Suspect]
     Indication: OSTEOPOROSIS
     Dosage: DOSE:UNKNOWN
     Route: 042
     Dates: start: 20091117, end: 20111206

REACTIONS (1)
  - FEMORAL NECK FRACTURE [None]
